FAERS Safety Report 21271204 (Version 1)
Quarter: 2022Q3

REPORT INFORMATION
  Report Type: Spontaneous
  Country: ES (occurrence: ES)
  Receive Date: 20220830
  Receipt Date: 20220830
  Transmission Date: 20221027
  Serious: Yes (Hospitalization)
  Sender: FDA-Public Use
  Company Number: None

PATIENT
  Age: 92 Year
  Sex: Male

DRUGS (4)
  1. AZITHROMYCIN DIHYDRATE [Suspect]
     Active Substance: AZITHROMYCIN DIHYDRATE
     Indication: Product used for unknown indication
     Dosage: 500MG CADA 24 HORAS
     Route: 048
     Dates: start: 20220801, end: 20220803
  2. CEFTRIAXONE [Suspect]
     Active Substance: CEFTRIAXONE
     Indication: Pneumonia
     Dosage: 1G CADA 24 HORAS
     Route: 042
     Dates: start: 20220801, end: 20220803
  3. CEFDITOREN [Suspect]
     Active Substance: CEFDITOREN
     Indication: Pneumonia
     Dosage: 400MG CADA 12 HORAS
     Route: 048
     Dates: start: 20220804, end: 20220808
  4. AMOXICILLIN\CLAVULANIC ACID [Concomitant]
     Active Substance: AMOXICILLIN\CLAVULANIC ACID
     Indication: Pneumonia
     Dosage: 500/125MG 1 COMP CADA 8 HORAS
     Route: 048
     Dates: start: 20220728, end: 20220801

REACTIONS (1)
  - Clostridium difficile colitis [Recovering/Resolving]

NARRATIVE: CASE EVENT DATE: 20220808
